FAERS Safety Report 24970657 (Version 1)
Quarter: 2025Q1

REPORT INFORMATION
  Report Type: Spontaneous
  Country: PL (occurrence: PL)
  Receive Date: 20250214
  Receipt Date: 20250214
  Transmission Date: 20250409
  Serious: Yes (Other)
  Sender: BAYER HEALTHCARE PHARMACEUTICALS INC.
  Company Number: None

PATIENT
  Age: 59 Year
  Sex: Female
  Weight: 58 kg

DRUGS (1)
  1. ULTRAVIST [Suspect]
     Active Substance: IOPROMIDE
     Indication: Breast cancer female
     Route: 042
     Dates: start: 20210617, end: 20210617

REACTIONS (4)
  - Trismus [Recovering/Resolving]
  - Oedema mouth [Recovering/Resolving]
  - Nasal congestion [Recovering/Resolving]
  - Cough [Recovering/Resolving]

NARRATIVE: CASE EVENT DATE: 20210617
